FAERS Safety Report 21608794 (Version 1)
Quarter: 2022Q4

REPORT INFORMATION
  Report Type: Spontaneous
  Country: US (occurrence: US)
  Receive Date: 20221117
  Receipt Date: 20221117
  Transmission Date: 20230113
  Serious: No
  Sender: FDA-Public Use
  Company Number: US-PFIZER INC-PV202200104670

PATIENT
  Age: 80 Year
  Sex: Female
  Weight: 92.971 kg

DRUGS (6)
  1. AZULFIDINE [Suspect]
     Active Substance: SULFASALAZINE
     Indication: Rheumatoid arthritis
     Dosage: 2000 MG, 1X/DAY, QD
     Route: 048
     Dates: start: 201208, end: 202009
  2. AZULFIDINE [Suspect]
     Active Substance: SULFASALAZINE
     Dosage: 3000 MG, 1X/DAY, QD
     Route: 048
     Dates: start: 202009, end: 20210715
  3. AZULFIDINE [Suspect]
     Active Substance: SULFASALAZINE
     Dosage: 2000 MG, 1X/DAY, QD
     Route: 048
     Dates: start: 202108, end: 202206
  4. PREDNISONE [Concomitant]
     Active Substance: PREDNISONE
     Indication: Rheumatoid arthritis
     Dosage: UNK
     Dates: start: 202111
  5. FOLIC ACID [Concomitant]
     Active Substance: FOLIC ACID
     Dosage: UNK
  6. TRAMADOL [Concomitant]
     Active Substance: TRAMADOL
     Dosage: UNK

REACTIONS (1)
  - Drug ineffective [Unknown]

NARRATIVE: CASE EVENT DATE: 20200901
